FAERS Safety Report 6504875-1 (Version None)
Quarter: 2009Q4

REPORT INFORMATION
  Report Type: 
  Country: None (occurrence: None)
  Receive Date: 20091218
  Receipt Date: 20091215
  Transmission Date: 20100525
  Serious: Yes (Hospitalization, Other)
  Sender: FDA-Public Use
  Company Number: TW-ROCHE-665101

PATIENT
  Sex: Male

DRUGS (10)
  1. MIRCERA [Suspect]
     Route: 058
     Dates: start: 20090806
  2. MIRCERA [Suspect]
     Route: 058
     Dates: end: 20091002
  3. ARANESP [Suspect]
     Route: 058
     Dates: start: 20090428, end: 20090806
  4. TELMISARTAN [Suspect]
     Indication: DRUG USE FOR UNKNOWN INDICATION
     Route: 048
  5. FOLIC ACID [Concomitant]
     Route: 048
  6. FUROSEMIDE [Concomitant]
     Dosage: FREQUENCY: BID PRN
     Route: 048
  7. NORVASC [Concomitant]
     Route: 048
  8. ATENOLOL [Concomitant]
  9. EUMOVATE CREAM [Concomitant]
     Route: 061
  10. GENTAMICIN [Concomitant]
     Dosage: FREQUENCY: QN
     Route: 047

REACTIONS (2)
  - BONE MARROW FAILURE [None]
  - HYPOPARATHYROIDISM [None]
